FAERS Safety Report 25409786 (Version 1)
Quarter: 2025Q2

REPORT INFORMATION
  Report Type: Spontaneous
  Country: US (occurrence: US)
  Receive Date: 20250607
  Receipt Date: 20250607
  Transmission Date: 20250717
  Serious: No
  Sender: RIGEL PHARMACEUTICALS
  Company Number: US-RIGE Pharmaceuticals, INC-20250400112

PATIENT
  Age: 66 Year
  Sex: Female

DRUGS (1)
  1. TAVALISSE [Suspect]
     Active Substance: FOSTAMATINIB
     Indication: Immune thrombocytopenia
     Dosage: UNK, BID
     Route: 048
     Dates: start: 20211026

REACTIONS (7)
  - Nephrolithiasis [Unknown]
  - Illness [Recovering/Resolving]
  - Platelet count decreased [Unknown]
  - Vomiting [Recovering/Resolving]
  - Oral surgery [Unknown]
  - Product dose omission issue [Unknown]
  - Diarrhoea [Unknown]

NARRATIVE: CASE EVENT DATE: 20250401
